FAERS Safety Report 9678742 (Version 2)
Quarter: 2014Q1

REPORT INFORMATION
  Report Type: Spontaneous
  Country: US (occurrence: US)
  Receive Date: 20131108
  Receipt Date: 20140212
  Transmission Date: 20141002
  Serious: Yes (Hospitalization)
  Sender: FDA-Public Use
  Company Number: US-B.I. PHARMACEUTICALS,INC./RIDGEFIELD-2013-BI-35456BP

PATIENT
  Age: 84 Year
  Sex: Female

DRUGS (9)
  1. PRADAXA [Suspect]
     Indication: ATRIAL FIBRILLATION
     Dosage: 300 MG
     Route: 048
     Dates: start: 20110812, end: 20120425
  2. ADVAIR [Concomitant]
  3. ASPIRIN [Concomitant]
     Dosage: 81 MG
  4. DIOVAN [Concomitant]
     Dosage: 320 MG
  5. FOLIC ACID [Concomitant]
     Dosage: 1 MG
  6. TOPROL XL [Concomitant]
     Dosage: 50 MG
  7. VITAMIN B12 [Concomitant]
     Dosage: 1000 MCG
  8. CLONIDINE [Concomitant]
  9. TYLENOL [Concomitant]

REACTIONS (2)
  - Gastrointestinal haemorrhage [Unknown]
  - Haemorrhagic anaemia [Unknown]
